FAERS Safety Report 11604922 (Version 1)
Quarter: 2015Q4

REPORT INFORMATION
  Report Type: Spontaneous
  Country: US (occurrence: None)
  Receive Date: 20151006
  Receipt Date: 20151006
  Transmission Date: 20160304
  Serious: Yes (Other)
  Sender: FDA-Public Use
  Company Number: None

PATIENT
  Age: 52 Year
  Sex: Female
  Weight: 69.85 kg

DRUGS (3)
  1. PREDNISONE 10 MG. TABLET [Suspect]
     Active Substance: PREDNISONE
     Indication: IRRITABLE BOWEL SYNDROME
     Route: 048
     Dates: end: 20150908
  2. ASACHOL HD [Concomitant]
  3. PREDNISONE 10 MG. TABLET [Suspect]
     Active Substance: PREDNISONE
     Indication: COLITIS
     Route: 048
     Dates: end: 20150908

REACTIONS (2)
  - Malaise [None]
  - Medication residue present [None]
